FAERS Safety Report 12348889 (Version 3)
Quarter: 2017Q2

REPORT INFORMATION
  Report Type: Report from Study
  Country: US (occurrence: US)
  Receive Date: 20160509
  Receipt Date: 20170504
  Transmission Date: 20170830
  Serious: Yes (Other)
  Sender: FDA-Public Use
  Company Number: PHEH2016US011487

PATIENT
  Age: 48 Year
  Sex: Female
  Weight: 48.98 kg

DRUGS (5)
  1. DEPO-PROVERA [Concomitant]
     Active Substance: MEDROXYPROGESTERONE ACETATE
     Indication: PRODUCT USED FOR UNKNOWN INDICATION
     Dosage: 150 MG/ML, Q3MO
     Route: 065
  2. ATIVAN [Concomitant]
     Active Substance: LORAZEPAM
     Indication: PRODUCT USED FOR UNKNOWN INDICATION
     Dosage: 1 MG, 40 MINUTES PRIOR TO MRI AND REPEAT SFTERWARD IF NECESSARY, DISP:2, RFI:0
     Route: 065
  3. GILENYA [Suspect]
     Active Substance: FINGOLIMOD HYDROCHLORIDE
     Indication: RELAPSING-REMITTING MULTIPLE SCLEROSIS
     Dosage: 0.5 MG, QD
     Route: 048
     Dates: start: 201408, end: 201602
  4. NEURONTIN [Concomitant]
     Active Substance: GABAPENTIN
     Indication: PRODUCT USED FOR UNKNOWN INDICATION
     Dosage: 400 MG (100 MG IN AM AND 300 MG IN NIGHT)
     Route: 065
  5. VITAMINA D2 [Concomitant]
     Indication: PRODUCT USED FOR UNKNOWN INDICATION
     Dosage: 50000 U, QW
     Route: 048

REACTIONS (13)
  - Optic atrophy [Unknown]
  - Decreased nasolabial fold [Unknown]
  - Vitamin D decreased [Unknown]
  - Drug ineffective [Recovered/Resolved]
  - Coordination abnormal [Unknown]
  - Sensory disturbance [Unknown]
  - Fatigue [Recovering/Resolving]
  - Motor dysfunction [Unknown]
  - Vibration test abnormal [Unknown]
  - Dysmetria [Unknown]
  - Extensor plantar response [Unknown]
  - Lymphopenia [Recovered/Resolved]
  - Upper motor neurone lesion [Unknown]

NARRATIVE: CASE EVENT DATE: 201602
